FAERS Safety Report 22603942 (Version 1)
Quarter: 2023Q2

REPORT INFORMATION
  Report Type: Report from Study
  Country: NL (occurrence: NL)
  Receive Date: 20230615
  Receipt Date: 20230615
  Transmission Date: 20230722
  Serious: Yes (Other)
  Sender: FDA-Public Use
  Company Number: NL-002147023-NVSC2023NL134451

PATIENT
  Sex: Female

DRUGS (1)
  1. ACLASTA [Suspect]
     Active Substance: ZOLEDRONIC ACID
     Indication: Osteoporosis
     Dosage: 1 DOSAGE FORM, EVERY 26 WEEKS
     Route: 041

REACTIONS (5)
  - Haematochezia [Unknown]
  - Myalgia [Unknown]
  - Headache [Unknown]
  - Muscle spasms [Unknown]
  - Off label use [Unknown]
